FAERS Safety Report 21226775 (Version 1)
Quarter: 2022Q3

REPORT INFORMATION
  Report Type: Spontaneous
  Country: US (occurrence: US)
  Receive Date: 20220818
  Receipt Date: 20220818
  Transmission Date: 20221027
  Serious: Yes (Death, Other)
  Sender: FDA-Public Use
  Company Number: US-SA-SAC20220816000897

PATIENT
  Age: 63 Year
  Sex: Female

DRUGS (1)
  1. ZANTAC [Suspect]
     Active Substance: RANITIDINE HYDROCHLORIDE
     Indication: Abdominal discomfort
     Dosage: 25 MG, QD
     Dates: start: 200601, end: 201012

REACTIONS (4)
  - Bladder cancer [Fatal]
  - Breast cancer female [Fatal]
  - Renal cancer [Fatal]
  - Vulval cancer [Fatal]

NARRATIVE: CASE EVENT DATE: 20140101
